FAERS Safety Report 24528917 (Version 4)
Quarter: 2025Q2

REPORT INFORMATION
  Report Type: Spontaneous
  Country: US (occurrence: US)
  Receive Date: 20241021
  Receipt Date: 20250403
  Transmission Date: 20250716
  Serious: No
  Sender: PHARMING GROUP
  Company Number: US-PHARMING-PHAUS2024000929

PATIENT

DRUGS (6)
  1. RUCONEST [Suspect]
     Active Substance: CONESTAT ALFA
     Indication: Hereditary angioedema
     Dosage: 4200 IU, ONCE WEEKLY AND AS NEEDED. NO MORE THAT TWO DOSES WITH 24-HOUR PERIOD
     Route: 042
     Dates: start: 202308
  2. RUCONEST [Suspect]
     Active Substance: CONESTAT ALFA
     Dosage: 4200 IU, ONCE WEEKLY AND AS NEEDED
     Route: 042
     Dates: start: 202308
  3. RUCONEST [Suspect]
     Active Substance: CONESTAT ALFA
     Dosage: 4200 IU, ONCE WEEKLY AND PRN
     Route: 042
     Dates: start: 202308
  4. RUCONEST [Suspect]
     Active Substance: CONESTAT ALFA
     Dosage: 4200 IU, ONCE WEEKLY AND PRN
     Route: 042
     Dates: start: 202308
  5. TORADOL [Concomitant]
     Active Substance: KETOROLAC TROMETHAMINE
     Indication: Product used for unknown indication
  6. TYLENOL [Concomitant]
     Active Substance: ACETAMINOPHEN
     Indication: Product used for unknown indication

REACTIONS (2)
  - Weight fluctuation [Unknown]
  - Intentional product use issue [Unknown]
